FAERS Safety Report 15818848 (Version 3)
Quarter: 2019Q2

REPORT INFORMATION
  Report Type: Report from Study
  Country: JP (occurrence: JP)
  Receive Date: 20190113
  Receipt Date: 20190427
  Transmission Date: 20190711
  Serious: Yes (Death, Life-Threatening, Hospitalization, Other)
  Sender: FDA-Public Use
  Company Number: JP-AMGEN-JPNSP2015103659

PATIENT
  Age: 75 Year
  Sex: Female
  Weight: 44 kg

DRUGS (49)
  1. ROMIPLOSTIM [Suspect]
     Active Substance: ROMIPLOSTIM
     Dosage: 3 MICROGRAM/KILOGRAM
     Route: 058
     Dates: start: 20151019
  2. PREDONINE [Suspect]
     Active Substance: PREDNISOLONE
     Dosage: 20 MILLIGRAM
     Route: 048
     Dates: start: 20160222, end: 20160310
  3. GLICLAZIDE [Concomitant]
     Active Substance: GLICLAZIDE
     Indication: DIABETES MELLITUS
     Dosage: UNK
     Route: 048
  4. REVOLADE [Concomitant]
     Active Substance: ELTROMBOPAG
     Dosage: 50 MILLIGRAM
     Route: 048
     Dates: start: 20160220, end: 20160320
  5. HUMULIN R [Concomitant]
     Active Substance: INSULIN HUMAN
     Indication: DIABETES MELLITUS
     Dosage: UNK
     Route: 058
  6. IMURAN [Suspect]
     Active Substance: AZATHIOPRINE
     Indication: IMMUNE THROMBOCYTOPENIC PURPURA
     Dosage: 100 MILLIGRAM, BID
     Route: 048
     Dates: start: 20150611, end: 201512
  7. PREDONINE [Suspect]
     Active Substance: PREDNISOLONE
     Indication: IMMUNE THROMBOCYTOPENIC PURPURA
     Dosage: 5-15 MG, UNK
     Route: 048
     Dates: start: 20150611
  8. PREDONINE [Suspect]
     Active Substance: PREDNISOLONE
     Dosage: 7.5 MILLIGRAM
     Route: 048
     Dates: start: 20151020, end: 20160221
  9. REVOLADE [Concomitant]
     Active Substance: ELTROMBOPAG
     Indication: IMMUNE THROMBOCYTOPENIC PURPURA
     Dosage: 25 MILLIGRAM
     Route: 048
     Dates: start: 20160208, end: 20160218
  10. PREDONINE [Suspect]
     Active Substance: PREDNISOLONE
     Dosage: 5 MILLIGRAM
     Route: 048
     Dates: start: 20150901, end: 20150924
  11. PREDONINE [Suspect]
     Active Substance: PREDNISOLONE
     Dosage: 15 MILLIGRAM
     Route: 048
     Dates: start: 20160317, end: 20160318
  12. CEPHADOL [Concomitant]
     Active Substance: DIPHENIDOL HYDROCHLORIDE
     Indication: DIZZINESS
     Dosage: UNK
     Route: 048
  13. FOIPAN [Concomitant]
     Active Substance: CAMOSTAT MESYLATE
     Indication: PANCREATITIS CHRONIC
     Dosage: UNK
     Route: 048
  14. CRESTOR [Concomitant]
     Active Substance: ROSUVASTATIN CALCIUM
     Indication: HYPERLIPIDAEMIA
     Dosage: UNK
     Route: 048
  15. PANTOSIN [Concomitant]
     Active Substance: PANTETHINE
     Indication: HYPERLIPIDAEMIA
     Dosage: UNK
     Route: 065
  16. EVISTA [Concomitant]
     Active Substance: RALOXIFENE HYDROCHLORIDE
     Indication: OSTEOPOROSIS
     Dosage: UNK
     Route: 048
  17. RENIVACE [Concomitant]
     Active Substance: ENALAPRIL
     Indication: HYPERTENSION
     Dosage: UNK
     Route: 048
  18. REVOLADE [Concomitant]
     Active Substance: ELTROMBOPAG
     Dosage: 37.5 MILLIGRAM
     Route: 048
     Dates: start: 20160219, end: 20160219
  19. ROMIPLOSTIM [Suspect]
     Active Substance: ROMIPLOSTIM
     Dosage: 5 MICROGRAM/KILOGRAM, QWK
     Route: 058
     Dates: start: 20150928, end: 20151012
  20. PREDONINE [Suspect]
     Active Substance: PREDNISOLONE
     Dosage: 15 MILLIGRAM
     Route: 048
     Dates: start: 20150925, end: 20151005
  21. MERISLON [Concomitant]
     Active Substance: BETAHISTINE MESILATE
     Indication: DIZZINESS
     Dosage: UNK
     Route: 048
  22. NEXIUM [Concomitant]
     Active Substance: ESOMEPRAZOLE MAGNESIUM
     Indication: GASTROOESOPHAGEAL REFLUX DISEASE
     Dosage: UNK
     Route: 048
  23. PREDONINE [Suspect]
     Active Substance: PREDNISOLONE
     Dosage: 6 MILLIGRAM
     Route: 048
     Dates: start: 20150611, end: 20150831
  24. PRIMPERAN [Concomitant]
     Active Substance: METOCLOPRAMIDE HYDROCHLORIDE
     Indication: ENTEROCOLITIS
  25. LENDORMIN [Concomitant]
     Active Substance: BROTIZOLAM
     Indication: NEUROSIS
     Dosage: UNK
     Route: 048
  26. HALFDIGOXIN [Concomitant]
     Active Substance: DIGOXIN
     Indication: ATRIAL FIBRILLATION
     Dosage: UNK
     Route: 048
  27. RITUXAN [Concomitant]
     Active Substance: RITUXIMAB
     Dosage: 500 MG, QWK
     Route: 065
     Dates: start: 20160307, end: 20160314
  28. DAIPHEN [Concomitant]
     Active Substance: SULFAMETHOXAZOLE\TRIMETHOPRIM
     Indication: PROPHYLAXIS
     Dosage: UNK
     Route: 048
  29. PREDONINE [Suspect]
     Active Substance: PREDNISOLONE
     Dosage: 10 MILLIGRAM
     Route: 048
     Dates: start: 20160319, end: 20160320
  30. METHYLPREDNISOLONE. [Suspect]
     Active Substance: METHYLPREDNISOLONE
     Dosage: 40 MILLIGRAM
     Route: 065
     Dates: start: 20160313, end: 20160313
  31. METHYLPREDNISOLONE. [Suspect]
     Active Substance: METHYLPREDNISOLONE
     Dosage: 30 MILLIGRAM
     Route: 065
     Dates: start: 20160314, end: 20160314
  32. METHYLPREDNISOLONE. [Suspect]
     Active Substance: METHYLPREDNISOLONE
     Dosage: 20 MILLIGRAM
     Route: 065
     Dates: start: 20160315, end: 20160316
  33. SEROQUEL [Concomitant]
     Active Substance: QUETIAPINE FUMARATE
     Indication: NEUROSIS
     Dosage: UNK
     Route: 048
  34. DEPAS [Concomitant]
     Indication: NEUROSIS
     Dosage: UNK
     Route: 048
  35. RITUXAN [Concomitant]
     Active Substance: RITUXIMAB
     Indication: IMMUNE THROMBOCYTOPENIC PURPURA
     Dosage: 500 MILLIGRAM
     Route: 065
     Dates: start: 20160227, end: 20160227
  36. VENOGLOBULIN IH [Concomitant]
     Active Substance: HUMAN IMMUNOGLOBULIN G
     Indication: IMMUNE THROMBOCYTOPENIC PURPURA
     Dosage: 10000 MILLIGRAM
     Route: 065
     Dates: start: 20160305, end: 20160311
  37. PREDONINE [Suspect]
     Active Substance: PREDNISOLONE
     Dosage: 10 MILLIGRAM
     Route: 048
     Dates: start: 20151006, end: 20151019
  38. GLIMICRON [Concomitant]
     Active Substance: GLICLAZIDE
     Indication: DIABETES MELLITUS
     Dosage: UNK
     Route: 048
  39. LEVOFLOXACIN HEMIHYDRATE [Concomitant]
     Active Substance: LEVOFLOXACIN
     Indication: ENTEROCOLITIS
     Dosage: UNK
     Route: 065
  40. PRIMPERAN [Concomitant]
     Active Substance: METOCLOPRAMIDE HYDROCHLORIDE
     Indication: DIZZINESS
     Dosage: UNK
     Route: 065
  41. GOREISAN [Concomitant]
     Active Substance: HERBALS
     Indication: SUBDURAL HYGROMA
     Dosage: UNK
     Route: 048
  42. ROMIPLOSTIM [Suspect]
     Active Substance: ROMIPLOSTIM
     Indication: IMMUNE THROMBOCYTOPENIC PURPURA
     Dosage: 3 MICROGRAM/KILOGRAM
     Route: 058
     Dates: start: 20150625, end: 20150625
  43. ROMIPLOSTIM [Suspect]
     Active Substance: ROMIPLOSTIM
     Dosage: 3 MICROGRAM/KILOGRAM, QWK
     Route: 058
     Dates: start: 20150803, end: 20150921
  44. ROMIPLOSTIM [Suspect]
     Active Substance: ROMIPLOSTIM
     Dosage: 10 MICROGRAM/KILOGRAM, QWK
     Route: 058
     Dates: start: 20160116, end: 20160206
  45. METHYLPREDNISOLONE. [Suspect]
     Active Substance: METHYLPREDNISOLONE
     Indication: IMMUNE THROMBOCYTOPENIC PURPURA
     Dosage: 1000 MILLIGRAM
     Route: 065
     Dates: start: 20160310, end: 20160312
  46. JANUVIA [Concomitant]
     Active Substance: SITAGLIPTIN PHOSPHATE
     Indication: DIABETES MELLITUS
     Dosage: UNK
     Route: 048
  47. BIO-THREE [Concomitant]
     Active Substance: HERBALS
     Indication: ENTEROCOLITIS
     Dosage: UNK
     Route: 048
  48. NAUZELIN [Concomitant]
     Active Substance: DOMPERIDONE
     Indication: ENTEROCOLITIS
     Dosage: UNK
     Route: 065
  49. SEPAZON [Concomitant]
     Active Substance: CLOXAZOLAM
     Indication: NEUROSIS
     Dosage: UNK
     Route: 048

REACTIONS (8)
  - Platelet count decreased [Recovered/Resolved]
  - Urinary tract infection [Recovered/Resolved]
  - Septic shock [Recovering/Resolving]
  - Infection [Not Recovered/Not Resolved]
  - Immune thrombocytopenic purpura [Not Recovered/Not Resolved]
  - Iron deficiency anaemia [Recovered/Resolved]
  - Cerebral haemorrhage [Fatal]
  - Mouth haemorrhage [Not Recovered/Not Resolved]

NARRATIVE: CASE EVENT DATE: 20150907
